FAERS Safety Report 23393470 (Version 1)
Quarter: 2024Q1

REPORT INFORMATION
  Report Type: Spontaneous
  Country: CA (occurrence: CA)
  Receive Date: 20240111
  Receipt Date: 20240111
  Transmission Date: 20240410
  Serious: Yes (Death)
  Sender: FDA-Public Use
  Company Number: CA-PFIZER INC-202400005339

PATIENT
  Age: 75 Year
  Sex: Female
  Weight: 82 kg

DRUGS (10)
  1. CARBOPLATIN [Suspect]
     Active Substance: CARBOPLATIN
     Indication: Ovarian cancer
     Dosage: 460 MG, MONTHLY
     Route: 041
  2. PACLITAXEL [Suspect]
     Active Substance: PACLITAXEL
     Indication: Ovarian cancer
     Dosage: 252 MG, MONTHLY
     Route: 042
  3. DEXAMETHASONE [Concomitant]
     Active Substance: DEXAMETHASONE
  4. FOSAPREPITANT [Concomitant]
     Active Substance: FOSAPREPITANT
  5. METOPROLOL [Concomitant]
     Active Substance: METOPROLOL
  6. ONDANSETRON [Concomitant]
     Active Substance: ONDANSETRON
  7. PROCHLORPERAZINE [Concomitant]
     Active Substance: PROCHLORPERAZINE
  8. REGULAR STRENGTH PAIN RELIEVER ACETAMINOPHEN [Concomitant]
  9. RIVAROXABAN [Concomitant]
     Active Substance: RIVAROXABAN
     Route: 065
  10. VITAMINS [Concomitant]
     Active Substance: VITAMINS

REACTIONS (4)
  - Dyspnoea [Fatal]
  - Feeling hot [Fatal]
  - Flushing [Fatal]
  - Infusion related reaction [Fatal]
